FAERS Safety Report 15809220 (Version 6)
Quarter: 2021Q2

REPORT INFORMATION
  Report Type: Other
  Country: IE (occurrence: IE)
  Receive Date: 20190110
  Receipt Date: 20210527
  Transmission Date: 20210716
  Serious: Yes (Death, Other)
  Sender: FDA-Public Use
  Company Number: IE-CELLTRION INC.-2019IE017672

PATIENT

DRUGS (45)
  1. RITUXIMAB. [Suspect]
     Active Substance: RITUXIMAB
     Indication: MANTLE CELL LYMPHOMA
     Dosage: UNK, 1/WEEK
     Route: 065
  2. CYTARABIN [Suspect]
     Active Substance: CYTARABINE
     Dosage: UNK
     Route: 065
  3. VENETOCLAX. [Suspect]
     Active Substance: VENETOCLAX
     Dosage: 800 MG, DAILY
     Route: 048
  4. RITUXIMAB (UNKNOWN) [Suspect]
     Active Substance: RITUXIMAB
     Dosage: 1/WEEK
     Route: 048
  5. OBINUTUZUMAB. [Suspect]
     Active Substance: OBINUTUZUMAB
     Dosage: UNK
     Route: 065
  6. DOXORUBICIN [Suspect]
     Active Substance: DOXORUBICIN
     Indication: MANTLE CELL LYMPHOMA
     Dosage: UNK
     Route: 065
  7. VINCRISTIN [Suspect]
     Active Substance: VINCRISTINE
     Indication: MANTLE CELL LYMPHOMA
     Dosage: UNK
     Route: 065
  8. MABTHERA [Suspect]
     Active Substance: RITUXIMAB
     Indication: MANTLE CELL LYMPHOMA
     Dosage: 1/WEEK
     Route: 048
  9. IMBRUVICA [Suspect]
     Active Substance: IBRUTINIB
     Dosage: UNK
     Route: 048
  10. VENETOCLAX. [Suspect]
     Active Substance: VENETOCLAX
     Indication: MANTLE CELL LYMPHOMA
     Dosage: 400 MG, DAILY
     Route: 065
  11. OBINUTUZUMAB. [Suspect]
     Active Substance: OBINUTUZUMAB
     Indication: MANTLE CELL LYMPHOMA
     Dosage: INFUSION SOLUTION
     Route: 042
  12. OBINUTUZUMAB. [Suspect]
     Active Substance: OBINUTUZUMAB
     Indication: MANTLE CELL LYMPHOMA
     Dosage: UNK
     Route: 065
  13. PREDNISONE. [Suspect]
     Active Substance: PREDNISONE
     Indication: MANTLE CELL LYMPHOMA
     Dosage: UNK
     Route: 065
  14. CYTARABIN [Suspect]
     Active Substance: CYTARABINE
     Indication: MANTLE CELL LYMPHOMA
     Dosage: UNK
     Route: 065
  15. CYTARABIN [Suspect]
     Active Substance: CYTARABINE
     Dosage: UNK
     Route: 065
  16. GAZYVARO [Suspect]
     Active Substance: OBINUTUZUMAB
     Indication: MANTLE CELL LYMPHOMA
     Dosage: UNK
     Route: 042
  17. GAZYVARO [Suspect]
     Active Substance: OBINUTUZUMAB
     Dosage: UNK
     Route: 042
  18. VENETOCLAX. [Suspect]
     Active Substance: VENETOCLAX
     Dosage: 400 MG, DAILY
     Route: 048
  19. VENETOCLAX. [Suspect]
     Active Substance: VENETOCLAX
     Dosage: 400 MG, DAILY
     Route: 048
  20. RITUXIMAB (UNKNOWN) [Suspect]
     Active Substance: RITUXIMAB
     Indication: MANTLE CELL LYMPHOMA
     Dosage: 1/WEEK
     Route: 065
  21. VENETOCLAX. [Suspect]
     Active Substance: VENETOCLAX
     Dosage: 800 MG, DAILY
     Route: 048
  22. VENETOCLAX. [Suspect]
     Active Substance: VENETOCLAX
     Dosage: 400 MG, DAILY
     Route: 048
  23. OBINUTUZUMAB. [Suspect]
     Active Substance: OBINUTUZUMAB
     Indication: MANTLE CELL LYMPHOMA
     Dosage: ADDITIONAL INFORMATION: INFUSION SOLUTION
     Route: 042
  24. CYCLOPHOSPHAMIDE. [Suspect]
     Active Substance: CYCLOPHOSPHAMIDE
     Indication: MANTLE CELL LYMPHOMA
     Dosage: UNK
     Route: 065
  25. IMBRUVICA [Suspect]
     Active Substance: IBRUTINIB
     Indication: MANTLE CELL LYMPHOMA
     Dosage: UNK
     Route: 048
  26. GAZYVARO [Suspect]
     Active Substance: OBINUTUZUMAB
     Dosage: UNK
     Route: 042
  27. VENETOCLAX. [Suspect]
     Active Substance: VENETOCLAX
     Dosage: ADDITIONAL INFO: 1 IN 1 DAY
     Route: 048
  28. CYCLOPHOSPHAMIDE. [Suspect]
     Active Substance: CYCLOPHOSPHAMIDE
     Indication: MANTLE CELL LYMPHOMA
     Dosage: UNK
     Route: 065
  29. DOXORUBICIN [Suspect]
     Active Substance: DOXORUBICIN
     Dosage: UNK
     Route: 065
  30. PREDNISONE. [Suspect]
     Active Substance: PREDNISONE
     Indication: MANTLE CELL LYMPHOMA
     Dosage: UNK
     Route: 065
  31. PREDNISONE. [Suspect]
     Active Substance: PREDNISONE
     Dosage: UNK
     Route: 065
  32. VINCRISTIN [Suspect]
     Active Substance: VINCRISTINE
     Indication: MANTLE CELL LYMPHOMA
     Dosage: UNK
     Route: 065
  33. MABTHERA [Suspect]
     Active Substance: RITUXIMAB
     Indication: MANTLE CELL LYMPHOMA
     Dosage: UNK, 1/WEEK
     Route: 048
  34. VENETOCLAX. [Suspect]
     Active Substance: VENETOCLAX
     Dosage: 800 MG, DAILY
     Route: 048
  35. RITUXIMAB. [Suspect]
     Active Substance: RITUXIMAB
     Dosage: UNK, 1/WEEK
     Route: 065
  36. CYTARABIN [Suspect]
     Active Substance: CYTARABINE
     Indication: MANTLE CELL LYMPHOMA
     Dosage: UNK
     Route: 065
  37. VINCRISTIN [Suspect]
     Active Substance: VINCRISTINE
     Dosage: UNK
     Route: 065
  38. VENETOCLAX. [Suspect]
     Active Substance: VENETOCLAX
     Dosage: 400 MG, DAILY
     Route: 048
  39. OBINUTUZUMAB. [Suspect]
     Active Substance: OBINUTUZUMAB
     Dosage: UNK
     Route: 065
  40. CYCLOPHOSPHAMIDE. [Suspect]
     Active Substance: CYCLOPHOSPHAMIDE
     Dosage: UNK
     Route: 065
  41. DOXORUBICIN [Suspect]
     Active Substance: DOXORUBICIN
     Indication: MANTLE CELL LYMPHOMA
     Dosage: UNK
     Route: 065
  42. MABTHERA [Suspect]
     Active Substance: RITUXIMAB
     Dosage: UNK, 1/WEEK
     Route: 048
  43. VENETOCLAX. [Suspect]
     Active Substance: VENETOCLAX
     Dosage: 800 MG, DAILY
     Route: 048
  44. VENETOCLAX. [Suspect]
     Active Substance: VENETOCLAX
     Dosage: ADDITIONAL INFO: 1 IN 1 DAY
     Route: 048
  45. IBRUTINIB [Suspect]
     Active Substance: IBRUTINIB
     Indication: MANTLE CELL LYMPHOMA
     Route: 065

REACTIONS (10)
  - Disease progression [Fatal]
  - Drug reaction with eosinophilia and systemic symptoms [Fatal]
  - Lymphocyte count increased [Fatal]
  - Splenomegaly [Fatal]
  - Off label use [Unknown]
  - Drug ineffective [Fatal]
  - Intentional product use issue [Fatal]
  - Mantle cell lymphoma recurrent [Fatal]
  - Lymphocyte count decreased [Fatal]
  - Incorrect route of product administration [Unknown]
